FAERS Safety Report 5690198-X (Version None)
Quarter: 2008Q2

REPORT INFORMATION
  Report Type: 
  Country: None (occurrence: None)
  Receive Date: 20080401
  Receipt Date: 20080326
  Transmission Date: 20081010
  Serious: Yes (Other)
  Sender: FDA-Public Use
  Company Number: JP-BRISTOL-MYERS SQUIBB COMPANY-14131973

PATIENT
  Age: 60 Year
  Sex: Female

DRUGS (2)
  1. PARAPLATIN [Suspect]
     Indication: LUNG ADENOCARCINOMA
     Route: 041
  2. TAXOL [Suspect]
     Indication: LUNG ADENOCARCINOMA
     Route: 041

REACTIONS (2)
  - PORTAL VEIN THROMBOSIS [None]
  - PULMONARY ARTERY THROMBOSIS [None]
